FAERS Safety Report 18987231 (Version 1)
Quarter: 2021Q1

REPORT INFORMATION
  Report Type: Spontaneous
  Country: US (occurrence: US)
  Receive Date: 20210309
  Receipt Date: 20210309
  Transmission Date: 20210420
  Serious: Yes (Hospitalization)
  Sender: FDA-Public Use
  Company Number: None

PATIENT
  Age: 54 Year
  Sex: Female

DRUGS (12)
  1. AMITIZA [Concomitant]
     Active Substance: LUBIPROSTONE
     Dates: start: 20191212
  2. SUCRALFATE. [Concomitant]
     Active Substance: SUCRALFATE
     Dates: start: 20191212
  3. PANTOPRAZOLE [Concomitant]
     Active Substance: PANTOPRAZOLE
     Dates: start: 20191212
  4. AMITRIPTYLIN [Concomitant]
     Active Substance: AMITRIPTYLINE
     Dates: start: 20191212
  5. BENLYSTA [Suspect]
     Active Substance: BELIMUMAB
     Indication: SYSTEMIC LUPUS ERYTHEMATOSUS
     Dosage: ?          OTHER FREQUENCY:WEEKLY;?
     Route: 058
     Dates: start: 20191218
  6. SYNTHROID [Concomitant]
     Active Substance: LEVOTHYROXINE SODIUM
     Dates: start: 20191212
  7. TIZANIDINE. [Concomitant]
     Active Substance: TIZANIDINE
     Dates: start: 20191212
  8. MOBIC TAB [Concomitant]
     Dates: start: 20191212
  9. UREA CREAM [Concomitant]
     Active Substance: UREA
     Dates: start: 20191212
  10. TRIAMCINOLON CREAM [Concomitant]
     Dates: start: 20191212
  11. PROMETHAZINE [Concomitant]
     Active Substance: PROMETHAZINE HYDROCHLORIDE
     Dates: start: 20191212
  12. MUPIROCIN OIN [Concomitant]
     Dates: start: 20191212

REACTIONS (2)
  - Pulmonary embolism [None]
  - Product dose omission in error [None]

NARRATIVE: CASE EVENT DATE: 20210308
